FAERS Safety Report 5120925-1 (Version None)
Quarter: 2006Q4

REPORT INFORMATION
  Report Type: 
  Country: None (occurrence: None)
  Receive Date: 20061005
  Receipt Date: 20060920
  Transmission Date: 20070319
  Serious: Yes (Life-Threatening)
  Sender: FDA-Public Use
  Company Number: JP-ROCHE-463999

PATIENT
  Sex: Female

DRUGS (1)
  1. LOXEN [Suspect]
     Indication: TOCOLYSIS
     Route: 065

REACTIONS (2)
  - ACUTE PULMONARY OEDEMA [None]
  - DRUG EXPOSURE DURING PREGNANCY [None]
